FAERS Safety Report 8358421-0 (Version None)
Quarter: 2012Q2

REPORT INFORMATION
  Report Type: 
  Country: None (occurrence: None)
  Receive Date: 20120514
  Receipt Date: 20120511
  Transmission Date: 20120825
  Serious: Yes (Life-Threatening, Hospitalization)
  Sender: FDA-Public Use
  Company Number: DE-B.I. PHARMACEUTICALS,INC./RIDGEFIELD-2012-DE-01277DE

PATIENT
  Sex: Male

DRUGS (3)
  1. PRADAXA [Suspect]
     Indication: ATRIAL FIBRILLATION
     Dosage: 300 MG
     Dates: end: 20120301
  2. ENOXAPARIN SODIUM [Concomitant]
     Indication: ANTICOAGULANT THERAPY
  3. ASPIRIN [Concomitant]

REACTIONS (2)
  - LOCALISED INFECTION [None]
  - ISCHAEMIC STROKE [None]
